FAERS Safety Report 6110280-2 (Version None)
Quarter: 2009Q1

REPORT INFORMATION
  Report Type: 
  Country: None (occurrence: None)
  Receive Date: 20090310
  Receipt Date: 20090225
  Transmission Date: 20090719
  Serious: Yes (Hospitalization)
  Sender: FDA-Public Use
  Company Number: JP-ROCHE-616364

PATIENT
  Sex: Female

DRUGS (1)
  1. PEG-INTERFERON ALFA 2A (RO 25-8310) [Suspect]
     Indication: HEPATITIS B
     Route: 058
     Dates: start: 20080827, end: 20090211

REACTIONS (1)
  - UTERINE POLYP [None]
